FAERS Safety Report 10586792 (Version 1)
Quarter: 2014Q4

REPORT INFORMATION
  Report Type: Spontaneous
  Country: US (occurrence: US)
  Receive Date: 20141117
  Receipt Date: 20141117
  Transmission Date: 20150529
  Serious: Yes (Other)
  Sender: FDA-Public Use
  Company Number: US-GLAXOSMITHKLINE-US2014GSK020428

PATIENT
  Age: 58 Year
  Sex: Female

DRUGS (10)
  1. INVEGA [Concomitant]
     Active Substance: PALIPERIDONE
  2. SOLEXA [Concomitant]
     Active Substance: CELECOXIB
  3. COGENTIN [Concomitant]
     Active Substance: BENZTROPINE MESYLATE
  4. NORCO [Concomitant]
     Active Substance: ACETAMINOPHEN\HYDROCODONE BITARTRATE
  5. HALOPERIDOL INJECTION [Concomitant]
  6. GABAPENTIN. [Concomitant]
     Active Substance: GABAPENTIN
  7. POTASSIUM CHLORIDE. [Concomitant]
     Active Substance: POTASSIUM CHLORIDE
  8. ADVAIR HFA [Suspect]
     Active Substance: FLUTICASONE PROPIONATE\SALMETEROL XINAFOATE
     Indication: CHRONIC OBSTRUCTIVE PULMONARY DISEASE
     Dosage: 1 PUFF(S), BID
     Dates: start: 201409
  9. ADVAIR HFA [Suspect]
     Active Substance: FLUTICASONE PROPIONATE\SALMETEROL XINAFOATE
     Indication: EMPHYSEMA
  10. HALOPERIDOL. [Concomitant]
     Active Substance: HALOPERIDOL

REACTIONS (9)
  - Dehydration [Unknown]
  - Hospitalisation [Unknown]
  - Urinary tract infection [Unknown]
  - Hypotension [Unknown]
  - Ankle fracture [Unknown]
  - Blood potassium decreased [Unknown]
  - Fall [Recovering/Resolving]
  - Loss of consciousness [Recovering/Resolving]
  - Dehydration [Unknown]

NARRATIVE: CASE EVENT DATE: 201410
